FAERS Safety Report 5293186-0 (Version None)
Quarter: 2007Q2

REPORT INFORMATION
  Report Type: 
  Country: None (occurrence: None)
  Receive Date: 20070411
  Receipt Date: 20070409
  Transmission Date: 20071010
  Serious: Yes (Disabling, Other)
  Sender: FDA-Public Use
  Company Number: 2007UW00220

PATIENT
  Age: 71 Year
  Sex: Male
  Weight: 82.7 kg

DRUGS (8)
  1. CRESTOR [Suspect]
     Indication: HYPERLIPIDAEMIA
     Route: 048
     Dates: start: 20060601, end: 20061007
  2. BYETTA [Suspect]
     Route: 030
     Dates: start: 20051201
  3. BYETTA [Suspect]
     Route: 030
     Dates: end: 20061001
  4. METFORMIN [Concomitant]
     Route: 048
  5. ACTOS [Concomitant]
     Route: 048
  6. BENICAR [Concomitant]
  7. LEVOXYL [Concomitant]
  8. TOPROL-XL [Concomitant]

REACTIONS (1)
  - MYASTHENIA GRAVIS [None]
